FAERS Safety Report 9110532 (Version 1)
Quarter: 2013Q1

REPORT INFORMATION
  Report Type: Spontaneous
  Country: US (occurrence: US)
  Receive Date: 20130221
  Receipt Date: 20130221
  Transmission Date: 20140127
  Serious: No
  Sender: FDA-Public Use
  Company Number: US-BRACCO-008272

PATIENT
  Age: 57 Year
  Sex: Female

DRUGS (4)
  1. KINEVAC [Suspect]
     Indication: HEPATOBILIARY SCAN
     Route: 042
     Dates: start: 20120627, end: 20120627
  2. KINEVAC [Suspect]
     Indication: ABDOMINAL PAIN
     Route: 042
     Dates: start: 20120627, end: 20120627
  3. CHOLETEC [Suspect]
     Indication: HEPATOBILIARY SCAN
     Route: 042
     Dates: start: 20120627, end: 20120627
  4. CHOLETEC [Suspect]
     Indication: ABDOMINAL PAIN
     Route: 042
     Dates: start: 20120627, end: 20120627

REACTIONS (1)
  - Vein discolouration [Unknown]
